FAERS Safety Report 24129709 (Version 1)
Quarter: 2024Q3

REPORT INFORMATION
  Report Type: Spontaneous
  Country: NL (occurrence: NL)
  Receive Date: 20240724
  Receipt Date: 20240724
  Transmission Date: 20241017
  Serious: Yes (Death)
  Sender: STRIDES
  Company Number: NL-STRIDES ARCOLAB LIMITED-2024SP008902

PATIENT

DRUGS (1)
  1. PREDNISOLONE [Suspect]
     Active Substance: PREDNISOLONE
     Indication: Atheroembolism
     Dosage: UNK
     Route: 065

REACTIONS (4)
  - Sepsis [Fatal]
  - Renal failure [Fatal]
  - Disease progression [Fatal]
  - Drug ineffective [Fatal]
